FAERS Safety Report 12725240 (Version 1)
Quarter: 2016Q3

REPORT INFORMATION
  Report Type: Spontaneous
  Country: SE (occurrence: SE)
  Receive Date: 20160908
  Receipt Date: 20160908
  Transmission Date: 20161109
  Serious: Yes (Hospitalization)
  Sender: FDA-Public Use
  Company Number: SE-PFIZER INC-2016418379

PATIENT
  Age: 83 Year
  Sex: Female

DRUGS (4)
  1. DOLCONTIN [Suspect]
     Active Substance: MORPHINE
     Indication: BACK PAIN
     Dosage: 20 MG, 2X/DAY
     Dates: start: 201608
  2. AMLODIPINE BESILATE [Suspect]
     Active Substance: AMLODIPINE BESYLATE
     Indication: HYPERTENSION
     Dosage: 5 MG, 2X/DAY
     Dates: start: 201608, end: 201608
  3. NAPROXEN. [Suspect]
     Active Substance: NAPROXEN
     Indication: BACK PAIN
     Dates: start: 201608
  4. ALVEDON [Concomitant]
     Active Substance: ACETAMINOPHEN
     Dates: start: 201608

REACTIONS (3)
  - Sedation [Unknown]
  - Acute kidney injury [Unknown]
  - Hypotension [Recovered/Resolved]

NARRATIVE: CASE EVENT DATE: 201608
